FAERS Safety Report 6866160-8 (Version None)
Quarter: 2010Q3

REPORT INFORMATION
  Report Type: 
  Country: None (occurrence: None)
  Receive Date: 20100722
  Receipt Date: 20100714
  Transmission Date: 20110219
  Serious: Yes (Hospitalization, Other)
  Sender: FDA-Public Use
  Company Number: US-JNJFOC-20100308092

PATIENT
  Sex: Male

DRUGS (3)
  1. LEVAQUIN [Suspect]
     Indication: SINUSITIS
     Route: 048
  2. LEVAQUIN [Suspect]
     Indication: UPPER RESPIRATORY TRACT INFECTION
     Route: 048
  3. LEVAQUIN [Suspect]
     Indication: COUGH
     Route: 048

REACTIONS (5)
  - CARTILAGE INJURY [None]
  - EPICONDYLITIS [None]
  - JOINT INJURY [None]
  - LIGAMENT RUPTURE [None]
  - TENDON RUPTURE [None]
